FAERS Safety Report 7880323-4 (Version None)
Quarter: 2011Q4

REPORT INFORMATION
  Report Type: 
  Country: None (occurrence: None)
  Receive Date: 20111101
  Receipt Date: 20111021
  Transmission Date: 20120403
  Serious: Yes (Hospitalization)
  Sender: FDA-Public Use
  Company Number: US-BAYER-2011-052127

PATIENT
  Sex: Female
  Weight: 61 kg

DRUGS (2)
  1. YAZ [Suspect]
     Indication: ACNE
     Dosage: UNK
     Dates: start: 20080101, end: 20080101
  2. PROPRANOLOL [Concomitant]
     Indication: PAIN PROPHYLAXIS
     Dosage: 20 MG, BID
     Route: 048

REACTIONS (2)
  - PAIN [None]
  - PULMONARY EMBOLISM [None]
